FAERS Safety Report 21805983 (Version 8)
Quarter: 2023Q2

REPORT INFORMATION
  Report Type: Spontaneous
  Country: GB (occurrence: GB)
  Receive Date: 20230102
  Receipt Date: 20230623
  Transmission Date: 20230722
  Serious: Yes (Other)
  Sender: FDA-Public Use
  Company Number: GB-BECTON DICKINSON-GB-BD-22-000465

PATIENT
  Sex: Female

DRUGS (4)
  1. CHLORAPREP [Suspect]
     Active Substance: CHLORHEXIDINE GLUCONATE\ISOPROPYL ALCOHOL
     Indication: Product used for unknown indication
     Dosage: UNK
     Route: 065
  2. SOLIRIS [Suspect]
     Active Substance: ECULIZUMAB
     Indication: Paroxysmal nocturnal haemoglobinuria
     Dosage: 600 MILLIGRAM, WEEKLY
     Route: 065
     Dates: start: 20120410, end: 20120430
  3. SOLIRIS [Suspect]
     Active Substance: ECULIZUMAB
     Dosage: 900 MILLIGRAM, EVERY TWO WEEKS
     Route: 042
     Dates: start: 20120504
  4. PENICILLINE V [Concomitant]
     Indication: Product used for unknown indication
     Dosage: UNK
     Route: 065

REACTIONS (22)
  - Vascular device infection [Not Recovered/Not Resolved]
  - Pseudomonas infection [Not Recovered/Not Resolved]
  - Streptococcal infection [Not Recovered/Not Resolved]
  - Staphylococcal infection [Not Recovered/Not Resolved]
  - Dyspnoea exertional [Not Recovered/Not Resolved]
  - Poor venous access [Not Recovered/Not Resolved]
  - Application site burn [Unknown]
  - Fatigue [Not Recovered/Not Resolved]
  - Peripheral swelling [Unknown]
  - Infection [Unknown]
  - Secretion discharge [Not Recovered/Not Resolved]
  - Blood pressure decreased [Unknown]
  - Dyspnoea [Not Recovered/Not Resolved]
  - Medical device site odour [Unknown]
  - Oropharyngeal pain [Recovering/Resolving]
  - Application site irritation [Unknown]
  - Catheter site erythema [Not Recovered/Not Resolved]
  - Erythema [Unknown]
  - Application site erythema [Not Recovered/Not Resolved]
  - Catheter site pruritus [Unknown]
  - Catheter site pain [Unknown]
  - Application site inflammation [Unknown]

NARRATIVE: CASE EVENT DATE: 20130602
